FAERS Safety Report 5630171-0 (Version None)
Quarter: 2008Q1

REPORT INFORMATION
  Report Type: 
  Country: None (occurrence: None)
  Receive Date: 20080219
  Receipt Date: 20080207
  Transmission Date: 20080703
  Serious: Yes (Other)
  Sender: FDA-Public Use
  Company Number: US-JNJFOC-20080202042

PATIENT
  Sex: Male
  Weight: 127.01 kg

DRUGS (14)
  1. FENTANYL TRANSDERMAL SYSTEM [Suspect]
     Indication: PAIN
     Route: 062
  2. ADVAIR DISKUS 100/50 [Concomitant]
     Indication: ASTHMA
     Dosage: 500/50MG  1 DOSE = 1 PUFF
     Route: 055
  3. ALBUTEROL [Concomitant]
     Indication: ASTHMA
     Dosage: 2 DOSES = 2 PUFFS
     Route: 055
  4. ATARAX [Concomitant]
     Indication: MIGRAINE
     Route: 048
  5. CLOTRIMAZOLE [Concomitant]
     Indication: CANDIDIASIS
     Route: 048
  6. SEROQUEL [Concomitant]
     Indication: AFFECTIVE DISORDER
     Route: 048
  7. SINGULAIR [Concomitant]
     Indication: ASTHMA
     Route: 048
  8. TOPAMAX [Concomitant]
     Indication: MIGRAINE
     Route: 048
  9. CYMBALTA [Concomitant]
     Indication: DEPRESSION
     Dosage: 2X 60MG
     Route: 048
  10. DUONEB [Concomitant]
     Indication: ASTHMA
     Route: 055
  11. LOTREL [Concomitant]
     Indication: HYPERTENSION
     Dosage: 5/20MG
     Route: 048
  12. NEXIUM [Concomitant]
     Indication: GASTRIC DISORDER
     Route: 048
  13. PROVIGIL [Concomitant]
     Indication: SLEEP DISORDER
     Route: 048
  14. REQUIP [Concomitant]
     Indication: RESTLESS LEGS SYNDROME
     Route: 048

REACTIONS (9)
  - BLOOD TESTOSTERONE DECREASED [None]
  - DEVICE LEAKAGE [None]
  - DRY MOUTH [None]
  - GASTRIC PH DECREASED [None]
  - HYPERTONIC BLADDER [None]
  - PULMONARY EMBOLISM [None]
  - PYREXIA [None]
  - SINUSITIS [None]
  - WRONG TECHNIQUE IN DRUG USAGE PROCESS [None]
